FAERS Safety Report 4963764-4 (Version None)
Quarter: 2006Q1

REPORT INFORMATION
  Report Type: 
  Country: None (occurrence: None)
  Receive Date: 20060330
  Receipt Date: 20060320
  Transmission Date: 20060701
  Serious: Yes (Hospitalization)
  Sender: FDA-Public Use
  Company Number: PAR_0571_2006

PATIENT
  Age: 16 Year
  Sex: Male

DRUGS (2)
  1. IBUPROFEN [Suspect]
     Indication: HEADACHE
     Dosage: 1200 MG QDAY
  2. NAPROXEN [Suspect]
     Indication: HEADACHE
     Dosage: 500 MG QDAY

REACTIONS (3)
  - FLANK PAIN [None]
  - RENAL FAILURE ACUTE [None]
  - URINARY CASTS [None]
